FAERS Safety Report 23501510 (Version 2)
Quarter: 2025Q3

REPORT INFORMATION
  Report Type: Report from Study
  Country: EG (occurrence: EG)
  Receive Date: 20240208
  Receipt Date: 20250701
  Transmission Date: 20251021
  Serious: Yes (Other)
  Sender: SANDOZ
  Company Number: EG-SANDOZ-SDZ2024EG012415

PATIENT
  Sex: Female
  Weight: 16.5 kg

DRUGS (4)
  1. OMNITROPE [Suspect]
     Active Substance: SOMATROPIN
     Indication: Growth hormone deficiency
     Route: 058
     Dates: start: 202308
  2. OMNITROPE [Suspect]
     Active Substance: SOMATROPIN
     Indication: Off label use
  3. SOMATROPIN [Suspect]
     Active Substance: SOMATROPIN
     Indication: Growth hormone deficiency
     Route: 058
     Dates: start: 20231126
  4. LEVOTHYROXINE [Concomitant]
     Active Substance: LEVOTHYROXINE
     Indication: Hypothyroidism
     Dosage: 25 MG, QD
     Route: 048
     Dates: start: 202204

REACTIONS (7)
  - Mental disorder [Not Recovered/Not Resolved]
  - Injection site inflammation [Unknown]
  - Injection site pain [Unknown]
  - Therapy cessation [Not Recovered/Not Resolved]
  - Product substitution issue [Not Recovered/Not Resolved]
  - Therapeutic response unexpected [Recovered/Resolved]
  - Off label use [Unknown]
